FAERS Safety Report 8463423-X (Version None)
Quarter: 2012Q2

REPORT INFORMATION
  Report Type: 
  Country: None (occurrence: None)
  Receive Date: 20120625
  Receipt Date: 20120619
  Transmission Date: 20120825
  Serious: Yes (Hospitalization, Disabling)
  Sender: FDA-Public Use
  Company Number: US-MERCK-1203USA03407

PATIENT
  Age: 59 Year
  Sex: Female
  Weight: 66 kg

DRUGS (2)
  1. HORMONES (UNSPECIFIED) [Concomitant]
     Route: 065
     Dates: start: 19950101
  2. FOSAMAX [Suspect]
     Indication: OSTEOPENIA
     Route: 048
     Dates: end: 20100101

REACTIONS (35)
  - OSTEOPOROSIS [None]
  - NAIL DYSTROPHY [None]
  - MONOCLONAL GAMMOPATHY [None]
  - NAUSEA [None]
  - LIGAMENT SPRAIN [None]
  - STRESS FRACTURE [None]
  - MUSCLE TIGHTNESS [None]
  - LEUKOCYTOSIS [None]
  - HYPOKALAEMIA [None]
  - FALL [None]
  - FEMUR FRACTURE [None]
  - OSTEOARTHRITIS [None]
  - SEBORRHOEIC KERATOSIS [None]
  - RIB FRACTURE [None]
  - SUPRAVENTRICULAR EXTRASYSTOLES [None]
  - ARTHRALGIA [None]
  - OCCULT BLOOD POSITIVE [None]
  - PATELLA FRACTURE [None]
  - DIZZINESS [None]
  - HYPERCHOLESTEROLAEMIA [None]
  - CONJUNCTIVAL HAEMORRHAGE [None]
  - HEAD INJURY [None]
  - DRUG INEFFECTIVE [None]
  - LOW TURNOVER OSTEOPATHY [None]
  - JOINT INJURY [None]
  - URINARY INCONTINENCE [None]
  - PAIN IN EXTREMITY [None]
  - CONTUSION [None]
  - FRACTURE NONUNION [None]
  - IMPAIRED HEALING [None]
  - HYPOPHOSPHATAEMIA [None]
  - TOOTH DISORDER [None]
  - ADVERSE EVENT [None]
  - COLONIC POLYP [None]
  - ECZEMA [None]
